FAERS Safety Report 21284253 (Version 1)
Quarter: 2022Q3

REPORT INFORMATION
  Report Type: Spontaneous
  Country: DE (occurrence: DE)
  Receive Date: 20220902
  Receipt Date: 20220902
  Transmission Date: 20221027
  Serious: Yes (Hospitalization, Other)
  Sender: FDA-Public Use
  Company Number: DE-AMGEN-DEUSP2022148562

PATIENT
  Age: 79 Year
  Sex: Female
  Weight: 66.8 kg

DRUGS (13)
  1. TRASTUZUMAB [Suspect]
     Active Substance: TRASTUZUMAB
     Indication: Breast cancer metastatic
     Dosage: 6 MG/KG
     Route: 065
     Dates: start: 20220306
  2. PROLIA [Suspect]
     Active Substance: DENOSUMAB
     Indication: Osteoporosis
     Dosage: 60 MILLIGRAM
     Route: 065
     Dates: start: 20200301
  3. RIBOCICLIB [Suspect]
     Active Substance: RIBOCICLIB
     Indication: Breast cancer metastatic
     Dosage: UNK
     Route: 065
     Dates: start: 20220306
  4. CAPECITABINE [Suspect]
     Active Substance: CAPECITABINE
     Indication: Breast cancer metastatic
     Route: 065
  5. PERTUZUMAB [Suspect]
     Active Substance: PERTUZUMAB
     Indication: Breast cancer metastatic
     Dosage: 420 MILLIGRAM, Q3WK
     Route: 065
     Dates: start: 20200306, end: 20220722
  6. CEFAZOLIN [Concomitant]
     Active Substance: CEFAZOLIN
     Dosage: 2 MILLIGRAM
     Dates: start: 20220131, end: 20220205
  7. FOSTER [Concomitant]
     Active Substance: BECLOMETHASONE\FORMOTEROL
  8. VITAMIN D [Concomitant]
     Active Substance: VITAMIN D NOS
  9. Kalinor [Concomitant]
     Dosage: UNK
     Dates: start: 20200324
  10. CITRIC ACID [Concomitant]
     Active Substance: CITRIC ACID MONOHYDRATE
  11. Lavasept [Concomitant]
     Dosage: 6 UNK
     Dates: start: 20220131, end: 20220205
  12. IBANDRONATE SODIUM [Concomitant]
     Active Substance: IBANDRONATE SODIUM
     Dosage: UNK
     Dates: start: 20220306
  13. IBUPROFEN [Concomitant]
     Active Substance: IBUPROFEN
     Dosage: UNK UNK, QD
     Dates: start: 20201009

REACTIONS (2)
  - Thrombosis [Recovered/Resolved]
  - Off label use [Unknown]

NARRATIVE: CASE EVENT DATE: 20220306
